FAERS Safety Report 22621570 (Version 1)
Quarter: 2023Q2

REPORT INFORMATION
  Report Type: Spontaneous
  Country: US (occurrence: None)
  Receive Date: 20230619
  Receipt Date: 20230619
  Transmission Date: 20230722
  Serious: Yes (Other)
  Sender: FDA-Public Use
  Company Number: None

PATIENT
  Age: 22 Year
  Sex: Female
  Weight: 63 kg

DRUGS (5)
  1. QULIPTA [Suspect]
     Active Substance: ATOGEPANT
     Indication: Migraine
     Dosage: OTHER QUANTITY : 1 TABLET(S);?
     Route: 048
     Dates: start: 20230501
  2. METHYLPREDNISOLONE [Concomitant]
     Active Substance: METHYLPREDNISOLONE
  3. SSD CREAM [Concomitant]
     Active Substance: SILVER SULFADIAZINE
  4. EXCEDRIN EXTRA STRENGTH [Concomitant]
     Active Substance: ACETAMINOPHEN\ASPIRIN\CAFFEINE
  5. ADVIL [Concomitant]
     Active Substance: IBUPROFEN

REACTIONS (10)
  - Burns first degree [None]
  - Sunburn [None]
  - Nausea [None]
  - Dizziness [None]
  - Peripheral swelling [None]
  - Peripheral swelling [None]
  - Gait inability [None]
  - Feeling abnormal [None]
  - Hyperaesthesia [None]
  - Paraesthesia [None]

NARRATIVE: CASE EVENT DATE: 20230617
